FAERS Safety Report 11241599 (Version 3)
Quarter: 2016Q3

REPORT INFORMATION
  Report Type: Report from Study
  Country: IL (occurrence: IL)
  Receive Date: 20150706
  Receipt Date: 20160923
  Transmission Date: 20161109
  Serious: Yes (Hospitalization)
  Sender: FDA-Public Use
  Company Number: IL-ABBVIE-15P-082-1416346-00

PATIENT
  Sex: Female

DRUGS (2)
  1. DUODOPA [Suspect]
     Active Substance: CARBIDOPA\LEVODOPA
     Indication: PARKINSON^S DISEASE
     Route: 050
     Dates: start: 20111208
  2. DUODOPA [Suspect]
     Active Substance: CARBIDOPA\LEVODOPA
     Dosage: DOSE INCREASED
     Route: 050

REACTIONS (9)
  - Dyskinesia [Unknown]
  - Mobility decreased [Recovering/Resolving]
  - Stress [Unknown]
  - On and off phenomenon [Recovering/Resolving]
  - Tremor [Unknown]
  - Mental disorder [Recovering/Resolving]
  - Extrapyramidal disorder [Unknown]
  - On and off phenomenon [Recovering/Resolving]
  - Muscle rigidity [Recovering/Resolving]

NARRATIVE: CASE EVENT DATE: 2015
